FAERS Safety Report 9184143 (Version 1)
Quarter: 2013Q1

REPORT INFORMATION
  Report Type: Spontaneous
  Country: US (occurrence: US)
  Receive Date: 20130322
  Receipt Date: 20130322
  Transmission Date: 20140127
  Serious: No
  Sender: FDA-Public Use
  Company Number: US-BRISTOL-MYERS SQUIBB COMPANY-17332438

PATIENT
  Age: 67 Year
  Sex: Female
  Weight: 62.58 kg

DRUGS (3)
  1. ERBITUX [Suspect]
     Indication: ANAL CANCER
  2. 5-FLUOROURACIL [Concomitant]
  3. IMODIUM [Concomitant]
     Indication: DIABETES MELLITUS

REACTIONS (1)
  - Furuncle [Unknown]
